FAERS Safety Report 24440792 (Version 2)
Quarter: 2024Q4

REPORT INFORMATION
  Report Type: Report from Study
  Country: GB (occurrence: GB)
  Receive Date: 20241016
  Receipt Date: 20241017
  Transmission Date: 20250115
  Serious: No
  Sender: ROCHE
  Company Number: GB-ROCHE-3444720

PATIENT
  Weight: 86.8 kg

DRUGS (2)
  1. HEMLIBRA [Suspect]
     Active Substance: EMICIZUMAB-KXWH
     Indication: Factor VIII deficiency
     Route: 065
     Dates: start: 20200602, end: 20201006
  2. ETORICOXIB [Concomitant]
     Active Substance: ETORICOXIB

REACTIONS (3)
  - Haemorrhage [Unknown]
  - Therapeutic response decreased [Unknown]
  - Synovitis [Unknown]
